FAERS Safety Report 8299775-3 (Version None)
Quarter: 2012Q2

REPORT INFORMATION
  Report Type: 
  Country: None (occurrence: None)
  Receive Date: 20120419
  Receipt Date: 20120419
  Transmission Date: 20120825
  Serious: Yes (Disabling)
  Sender: FDA-Public Use
  Company Number: None

PATIENT
  Sex: Male
  Weight: 972.95 kg

DRUGS (1)
  1. CELEXA [Suspect]
     Indication: MAJOR DEPRESSION
     Dosage: 40MG
     Route: 048
     Dates: start: 20100518, end: 20111220

REACTIONS (1)
  - ELECTROCARDIOGRAM QT PROLONGED [None]
